FAERS Safety Report 4654766-6 (Version None)
Quarter: 2005Q2

REPORT INFORMATION
  Report Type: 
  Country: None (occurrence: None)
  Receive Date: 20050504
  Receipt Date: 20050425
  Transmission Date: 20051028
  Serious: Yes (Hospitalization)
  Sender: FDA-Public Use
  Company Number: 2005JP000920

PATIENT
  Sex: Female

DRUGS (9)
  1. PROGRAF [Suspect]
     Indication: RENAL TRANSPLANT
     Dosage: 3.50 MG BID ORAL
     Route: 048
     Dates: start: 19970130
  2. METHYLPREDNISOLONE [Concomitant]
  3. AZATHIOPRINE [Concomitant]
  4. NORVASC [Concomitant]
  5. ENALAPRIL MALEATE [Concomitant]
  6. PERSANTIN [Concomitant]
  7. GLAKAY (MENATETRENONE) [Concomitant]
  8. ALFAROL (ALFACALCIDOL) [Concomitant]
  9. PRAVASTATIN [Concomitant]

REACTIONS (2)
  - DISEASE RECURRENCE [None]
  - GLOMERULONEPHRITIS FOCAL [None]
